FAERS Safety Report 9821980 (Version 3)
Quarter: 2014Q3

REPORT INFORMATION
  Report Type: Spontaneous
  Country: GR (occurrence: GR)
  Receive Date: 20140116
  Receipt Date: 20140707
  Transmission Date: 20150326
  Serious: Yes (Death, Other)
  Sender: FDA-Public Use
  Company Number: GR-JNJFOC-20140104894

PATIENT
  Age: 65 Year
  Sex: Male

DRUGS (1)
  1. REMICADE [Suspect]
     Active Substance: INFLIXIMAB
     Indication: ANKYLOSING SPONDYLITIS
     Dosage: 100MG/VIAL
     Route: 042
     Dates: start: 2013

REACTIONS (2)
  - Death [Fatal]
  - Lung cancer metastatic [Unknown]

NARRATIVE: CASE EVENT DATE: 201308
